FAERS Safety Report 8770391 (Version 2)
Quarter: 2012Q4

REPORT INFORMATION
  Report Type: 
  Country: SK (occurrence: SK)
  Receive Date: 20120904
  Receipt Date: 20120907
  Transmission Date: 20130627
  Serious: Yes (Hospitalization, Other)
  Sender: FDA-Public Use
  Company Number: SK-ELI_LILLY_AND_COMPANY-SK201208008480

PATIENT
  Age: 14 Year
  Sex: Male

DRUGS (6)
  1. STRATTERA [Suspect]
     Indication: ATTENTION DEFICIT/HYPERACTIVITY DISORDER
     Dosage: UNK UNK, unknown
     Dates: start: 201009
  2. STRATTERA [Suspect]
     Dosage: 60 mg, qd
  3. RISPERIDONE [Concomitant]
     Indication: ATTENTION DEFICIT/HYPERACTIVITY DISORDER
     Dosage: UNK, unknown
     Dates: start: 200910
  4. RISPERIDONE [Concomitant]
     Dosage: 0.5 mg, each evening
  5. SERTRALINE [Concomitant]
     Indication: ANXIETY DISORDER
     Dosage: UNK, unknown
  6. SERTRALINE [Concomitant]
     Dosage: 50 mg, qd

REACTIONS (2)
  - Autism [Unknown]
  - Affect lability [Recovered/Resolved]
